FAERS Safety Report 8136063-X (Version None)
Quarter: 2012Q1

REPORT INFORMATION
  Report Type: 
  Country: None (occurrence: None)
  Receive Date: 20120214
  Receipt Date: 20120130
  Transmission Date: 20120608
  Serious: Yes (Hospitalization)
  Sender: FDA-Public Use
  Company Number: AU-WATSON-2012-01646

PATIENT
  Age: 47 Year
  Sex: Male

DRUGS (3)
  1. VENLAFAXINE HYDROCHLORIDE [Suspect]
     Indication: DEPRESSION
     Dosage: 150 MG DAILY
  2. BACLOFEN [Suspect]
     Indication: ALCOHOLISM
     Dosage: 10 MG, TID
     Route: 065
  3. PROMETHAZINE [Suspect]
     Indication: MENTAL DISORDER
     Dosage: UNK
     Route: 065

REACTIONS (3)
  - OVERDOSE [None]
  - DISORIENTATION [None]
  - CONFUSIONAL STATE [None]
